FAERS Safety Report 12700506 (Version 2)
Quarter: 2017Q3

REPORT INFORMATION
  Report Type: Spontaneous
  Country: US (occurrence: US)
  Receive Date: 20160830
  Receipt Date: 20170829
  Transmission Date: 20171127
  Serious: No
  Sender: FDA-Public Use
  Company Number: US-SA-2016SA089920

PATIENT
  Age: 48 Year
  Sex: Male

DRUGS (2)
  1. FABRAZYME [Suspect]
     Active Substance: AGALSIDASE BETA
     Indication: FABRY^S DISEASE
     Route: 041
     Dates: start: 2016
  2. FABRAZYME [Suspect]
     Active Substance: AGALSIDASE BETA
     Indication: FABRY^S DISEASE
     Route: 041
     Dates: end: 20160420

REACTIONS (6)
  - Hyperacusis [Not Recovered/Not Resolved]
  - Tinnitus [Unknown]
  - Poor quality sleep [Unknown]
  - Malaise [Unknown]
  - Inflammation [Unknown]
  - Ear pain [Unknown]

NARRATIVE: CASE EVENT DATE: 201605
